FAERS Safety Report 5270591-X (Version None)
Quarter: 2007Q1

REPORT INFORMATION
  Report Type: 
  Country: None (occurrence: None)
  Receive Date: 20070315
  Receipt Date: 20070306
  Transmission Date: 20070707
  Serious: Yes (Hospitalization)
  Sender: FDA-Public Use
  Company Number: 231738K07USA

PATIENT
  Age: 35 Year
  Sex: Female
  Weight: 38.5557 kg

DRUGS (1)
  1. REBIF [Suspect]
     Indication: MULTIPLE SCLEROSIS
     Dosage: 44 MCG, 3 IN 1 WEEKS, SUBCUTANEOUS
     Route: 058
     Dates: start: 20061012

REACTIONS (4)
  - KIDNEY INFECTION [None]
  - PNEUMONIA [None]
  - URINARY TRACT INFECTION [None]
  - VOMITING [None]
